FAERS Safety Report 13853942 (Version 1)
Quarter: 2017Q3

REPORT INFORMATION
  Report Type: Spontaneous
  Country: US (occurrence: US)
  Receive Date: 20170809
  Receipt Date: 20170809
  Transmission Date: 20171127
  Serious: No
  Sender: FDA-Public Use
  Company Number: US-BAYER-2017-150918

PATIENT

DRUGS (1)
  1. MAGNEVIST [Suspect]
     Active Substance: GADOPENTETATE DIMEGLUMINE
     Dosage: UNK
     Dates: start: 201707, end: 201707

REACTIONS (3)
  - Sneezing [None]
  - Hypersensitivity [None]
  - Pharyngeal oedema [None]

NARRATIVE: CASE EVENT DATE: 201707
